FAERS Safety Report 9604335 (Version 1)
Quarter: 2013Q4

REPORT INFORMATION
  Report Type: Report from Study
  Country: CA (occurrence: CA)
  Receive Date: 20131008
  Receipt Date: 20131008
  Transmission Date: 20140711
  Serious: Yes (Other)
  Sender: FDA-Public Use
  Company Number: CA-JNJFOC-20131001800

PATIENT
  Age: 47 Year
  Sex: Male
  Weight: 65.5 kg

DRUGS (6)
  1. REMICADE [Suspect]
     Indication: CROHN^S DISEASE
     Route: 042
  2. NASONEX [Concomitant]
     Dosage: AS NEEDED
     Route: 065
  3. ADVAIR [Concomitant]
     Route: 065
  4. ATIVAN [Concomitant]
     Dosage: AS NEEDED
     Route: 065
  5. ENTOCORT [Concomitant]
     Dosage: 3 TABLETS ONCE A DAY
     Route: 048
  6. PENTASA [Concomitant]
     Dosage: 8 TABLET ONCE A DAY
     Route: 048

REACTIONS (2)
  - Abdominal operation [Unknown]
  - Suture related complication [Recovering/Resolving]
